FAERS Safety Report 23327373 (Version 3)
Quarter: 2024Q1

REPORT INFORMATION
  Report Type: Report from Study
  Country: CN (occurrence: CN)
  Receive Date: 20231221
  Receipt Date: 20240123
  Transmission Date: 20240409
  Serious: No
  Sender: FDA-Public Use
  Company Number: CN-PFIZER INC-PV202300204036

PATIENT
  Age: 92 Year
  Sex: Female

DRUGS (41)
  1. NIRMATRELVIR\RITONAVIR [Suspect]
     Active Substance: NIRMATRELVIR\RITONAVIR
     Indication: COVID-19
     Dosage: UNK, Q12H
     Route: 048
     Dates: start: 20220331, end: 20220404
  2. NIRMATRELVIR\RITONAVIR [Suspect]
     Active Substance: NIRMATRELVIR\RITONAVIR
     Dosage: [NIRMATRELVIR 300 MG/RITONAVIR 100 MG], Q12H
     Route: 048
     Dates: start: 20220408, end: 20220412
  3. VITAMIN C [Concomitant]
     Active Substance: ASCORBIC ACID
     Indication: COVID-19
     Dosage: UNK
     Route: 048
     Dates: start: 20220330, end: 20220331
  4. ESTAZOLAM [Concomitant]
     Active Substance: ESTAZOLAM
     Indication: Sleep disorder
     Dosage: UNK
     Route: 048
     Dates: start: 20220330, end: 20220330
  5. ESTAZOLAM [Concomitant]
     Active Substance: ESTAZOLAM
     Dosage: UNK
     Route: 048
     Dates: start: 20220410
  6. ESTAZOLAM [Concomitant]
     Active Substance: ESTAZOLAM
     Dosage: UNK
     Route: 048
     Dates: start: 20220414, end: 20220421
  7. AMINOPHYLLINE\CHLORPHENIRAMINE MALEATE\METHOXYPHENAMINE HYDROCHLORIDE\ [Concomitant]
     Active Substance: AMINOPHYLLINE\CHLORPHENIRAMINE MALEATE\METHOXYPHENAMINE HYDROCHLORIDE\NOSCAPINE
     Indication: COVID-19 treatment
     Dosage: UNK
     Route: 048
     Dates: start: 20220402, end: 20220408
  8. AMINOPHYLLINE\CHLORPHENIRAMINE MALEATE\METHOXYPHENAMINE HYDROCHLORIDE\ [Concomitant]
     Active Substance: AMINOPHYLLINE\CHLORPHENIRAMINE MALEATE\METHOXYPHENAMINE HYDROCHLORIDE\NOSCAPINE
     Dosage: UNK
     Route: 048
     Dates: start: 20220408, end: 20220421
  9. MONTELUKAST SODIUM [Concomitant]
     Active Substance: MONTELUKAST SODIUM
     Indication: COVID-19 treatment
     Dosage: UNK
     Route: 048
     Dates: start: 20220405, end: 20220405
  10. MONTELUKAST SODIUM [Concomitant]
     Active Substance: MONTELUKAST SODIUM
     Dosage: UNK
     Route: 048
     Dates: start: 20220408, end: 20220421
  11. DYPHYLLINE [Concomitant]
     Active Substance: DYPHYLLINE
     Indication: COVID-19 treatment
     Dosage: UNK
     Route: 042
     Dates: start: 20220405, end: 20220405
  12. ZOPICLONE [Concomitant]
     Active Substance: ZOPICLONE
     Indication: Sleep disorder
     Dosage: UNK
     Route: 048
     Dates: start: 20220405, end: 20220405
  13. ZOPICLONE [Concomitant]
     Active Substance: ZOPICLONE
     Dosage: UNK
     Route: 048
     Dates: start: 20220408, end: 20220416
  14. METOPROLOL [Concomitant]
     Active Substance: METOPROLOL
     Indication: Atrial fibrillation
     Dosage: UNK, SUSTAINED-RELEASE TABLETS
     Route: 048
     Dates: start: 20220406, end: 20220406
  15. METOPROLOL [Concomitant]
     Active Substance: METOPROLOL
     Dosage: UNK, SUSTAINED-RELEASE TABLETS
     Route: 048
     Dates: start: 20220407, end: 20220407
  16. METOPROLOL [Concomitant]
     Active Substance: METOPROLOL
     Dosage: UNK, SUSTAINED-RELEASE TABLETS
     Route: 048
     Dates: start: 20220408, end: 20220408
  17. METOPROLOL [Concomitant]
     Active Substance: METOPROLOL
     Dosage: UNK, SUSTAINED-RELEASE TABLETS
     Route: 048
     Dates: start: 20220410
  18. GLYCERIN [Concomitant]
     Active Substance: GLYCERIN
     Indication: Laxative supportive care
     Dosage: GLYCEROL ENEMA
     Route: 050
     Dates: start: 20220406, end: 20220406
  19. LACTULOSE [Concomitant]
     Active Substance: LACTULOSE
     Indication: Laxative supportive care
     Dosage: UNK
     Route: 048
     Dates: start: 20220406, end: 20220408
  20. LACTULOSE [Concomitant]
     Active Substance: LACTULOSE
     Dosage: UNK
     Route: 048
     Dates: start: 20220408, end: 20220421
  21. POTASSIUM CHLORIDE [Concomitant]
     Active Substance: POTASSIUM CHLORIDE
     Indication: Mineral supplementation
     Dosage: UNK
     Route: 048
     Dates: start: 20220407, end: 20220407
  22. CELECOXIB [Concomitant]
     Active Substance: CELECOXIB
     Indication: COVID-19 treatment
     Dosage: UNK
     Route: 048
     Dates: start: 20220407, end: 20220407
  23. COMPOUND CHLORHEXIDINE GARGLE [Concomitant]
     Indication: Dental care
     Dosage: UNK, COMPOUND CHLORHEXIDINE CONTAINS GARGLE
     Dates: start: 20220408, end: 20220408
  24. OXYGEN [Concomitant]
     Active Substance: OXYGEN
     Indication: COVID-19 treatment
     Dosage: UNK
     Route: 055
     Dates: start: 20220408, end: 20220421
  25. TORSEMIDE [Concomitant]
     Active Substance: TORSEMIDE
     Indication: Polyuria
     Dosage: UNK
     Route: 048
     Dates: start: 20220408, end: 20220421
  26. GINKGO BILOBA LEAF EXTRACT [Concomitant]
     Active Substance: GINKGO BILOBA LEAF EXTRACT
     Indication: COVID-19 treatment
     Dosage: UNK, GINKGO BILOBA LEAVES EXTRACT TABLETS
     Route: 048
     Dates: start: 20220408, end: 20220414
  27. PREDNISONE ACETATE [Concomitant]
     Active Substance: PREDNISONE ACETATE
     Indication: COVID-19 treatment
     Dosage: UNK
     Route: 048
     Dates: start: 20220408, end: 20220421
  28. LEVOCETIRIZINE HYDROCHLORIDE [Concomitant]
     Active Substance: LEVOCETIRIZINE HYDROCHLORIDE
     Indication: COVID-19 treatment
     Dosage: UNK
     Route: 048
     Dates: start: 20220408, end: 20220421
  29. OMEPRAZOLE [Concomitant]
     Active Substance: OMEPRAZOLE
     Indication: COVID-19 treatment
     Dosage: OMEPRAZOLE ENTERIC CAPSULE
     Route: 048
     Dates: start: 20220408, end: 20220421
  30. FEBUXOSTAT [Concomitant]
     Active Substance: FEBUXOSTAT
     Indication: Gout
     Dosage: UNK
     Route: 048
     Dates: start: 20220408, end: 20220421
  31. CALCIUM CARBONATE\CHOLECALCIFEROL [Concomitant]
     Active Substance: CALCIUM CARBONATE\CHOLECALCIFEROL
     Indication: Mineral supplementation
     Dosage: CALCIUM CARBONATE D3 TABLETS
     Route: 048
     Dates: start: 20220408, end: 20220421
  32. LEVOFLOXACIN [Concomitant]
     Active Substance: LEVOFLOXACIN
     Indication: Anti-infective therapy
     Dosage: UNK
     Route: 048
     Dates: start: 20220411, end: 20220420
  33. METOPROLOL [Concomitant]
     Active Substance: METOPROLOL
     Indication: Atrial fibrillation
     Dosage: SUSTAINED-RELEASE TABLETS
     Route: 048
     Dates: start: 20220412, end: 20220421
  34. RIVAROXABAN [Concomitant]
     Active Substance: RIVAROXABAN
     Indication: Thrombosis
     Dosage: UNK
     Dates: start: 20220414, end: 20220421
  35. KALLIDINOGENASE [Concomitant]
     Active Substance: KALLIDINOGENASE
     Indication: Microangiopathy
     Dosage: ENTERIC-COATED TABLETS
     Dates: start: 20220414, end: 20220421
  36. AMINO ACIDS NOS/FATS NOS/GLUCOSE [Concomitant]
     Indication: Nutritional supplementation
     Dosage: FAT EMULSION, AMMO AADS (17) AND GLUCOSE (11 %)
     Route: 042
     Dates: start: 20220410
  37. DESLANOSIDE [Concomitant]
     Active Substance: DESLANOSIDE
     Indication: Atrial fibrillation
     Dosage: UNK
     Route: 042
     Dates: start: 20220412
  38. OLANZAPINE [Concomitant]
     Active Substance: OLANZAPINE
     Indication: Anxiolytic therapy
     Dosage: UNK
     Route: 048
     Dates: start: 20220420, end: 20220421
  39. HERBALS\MENTHOL [Concomitant]
     Active Substance: HERBALS\MENTHOL
     Indication: COVID-19 treatment
     Dosage: UNK
     Route: 048
     Dates: start: 20220330, end: 20220330
  40. HERBALS\MENTHOL [Concomitant]
     Active Substance: HERBALS\MENTHOL
     Dosage: UNK
     Route: 048
     Dates: start: 20220405, end: 20220405
  41. HERBALS\MENTHOL [Concomitant]
     Active Substance: HERBALS\MENTHOL
     Dosage: UNK
     Route: 048
     Dates: start: 20220408, end: 20220421

REACTIONS (1)
  - Overdose [Unknown]

NARRATIVE: CASE EVENT DATE: 20220101
